FAERS Safety Report 6295972-7 (Version None)
Quarter: 2009Q3

REPORT INFORMATION
  Report Type: 
  Country: None (occurrence: None)
  Receive Date: 20090804
  Receipt Date: 20090727
  Transmission Date: 20100115
  Serious: Yes (Other)
  Sender: FDA-Public Use
  Company Number: FR-ASTRAZENECA-2009CG01175

PATIENT
  Age: 80 Day
  Sex: Male
  Weight: 6 kg

DRUGS (3)
  1. EMLA [Suspect]
     Indication: LOCAL ANAESTHESIA
     Dosage: APPLICATION OF HALF PATCH OF EMLA ON EACH THIGH
     Route: 061
     Dates: start: 20090516, end: 20090516
  2. INFANRIX HEXA [Concomitant]
     Indication: IMMUNISATION
     Dates: start: 20090516, end: 20090516
  3. PREVENAR [Concomitant]
     Indication: IMMUNISATION
     Dates: start: 20090516, end: 20090516

REACTIONS (1)
  - CYANOSIS CENTRAL [None]
